FAERS Safety Report 7099205-3 (Version None)
Quarter: 2010Q4

REPORT INFORMATION
  Report Type: 
  Country: None (occurrence: None)
  Receive Date: 20101112
  Receipt Date: 20101104
  Transmission Date: 20110411
  Serious: Yes (Hospitalization)
  Sender: FDA-Public Use
  Company Number: FR-JNJCH-2010020997

PATIENT
  Sex: Male

DRUGS (6)
  1. ALODONT (FRANCE) [Suspect]
     Indication: DENTAL DISORDER PROPHYLAXIS
     Dosage: TEXT:ONCE
     Route: 048
     Dates: start: 20100813, end: 20100813
  2. ZYRTEC [Suspect]
     Indication: URTICARIA
     Dosage: TEXT:UNKNWON
     Route: 048
  3. CHOLESTEROL- AND TRIGLYCERIDE REDUCERS [Concomitant]
     Indication: BLOOD CHOLESTEROL
     Dosage: TEXT:ONE TABLET PER DAY
     Route: 048
  4. ZOCOR [Concomitant]
     Indication: HYPERCHOLESTEROLAEMIA
     Dosage: TEXT:20MG ONE HALF TABLE DAILY
     Route: 048
  5. METRONIDAZOLE/SPIRAMYCIN [Concomitant]
     Dosage: TEXT:UNKNOWN
     Route: 065
     Dates: start: 20100801, end: 20100801
  6. IBUPROFEN [Concomitant]
     Indication: TOOTH ABSCESS
     Dosage: TEXT:UNKNOWN
     Route: 065
     Dates: start: 20100801, end: 20100801

REACTIONS (1)
  - ANGIOEDEMA [None]
